FAERS Safety Report 23353713 (Version 1)
Quarter: 2024Q1

REPORT INFORMATION
  Report Type: Spontaneous
  Country: US (occurrence: US)
  Receive Date: 20240101
  Receipt Date: 20240101
  Transmission Date: 20240410
  Serious: No
  Sender: FDA-Public Use
  Company Number: US-PURDUE PHARMA-USA-2023-0304717

PATIENT
  Age: 63 Year
  Sex: Male
  Weight: 84.807 kg

DRUGS (1)
  1. BUPRENORPHINE [Suspect]
     Active Substance: BUPRENORPHINE
     Indication: Back pain
     Dosage: 10 MCG/HR
     Route: 062

REACTIONS (6)
  - Feeling jittery [Unknown]
  - Nonspecific reaction [Recovered/Resolved]
  - Anxiety [Unknown]
  - Incorrect product administration duration [Recovered/Resolved]
  - Product dose omission issue [Recovered/Resolved]
  - Drug withdrawal syndrome [Recovered/Resolved]

NARRATIVE: CASE EVENT DATE: 20230907
